FAERS Safety Report 20797911 (Version 2)
Quarter: 2022Q3

REPORT INFORMATION
  Report Type: Spontaneous
  Country: JP (occurrence: JP)
  Receive Date: 20220506
  Receipt Date: 20220810
  Transmission Date: 20221027
  Serious: Yes (Death, Life-Threatening, Hospitalization, Other)
  Sender: FDA-Public Use
  Company Number: JP-JAZZ-2022-JP-002045

PATIENT
  Age: 55 Year
  Sex: Male
  Weight: 63.4 kg

DRUGS (7)
  1. DEFITELIO [Suspect]
     Active Substance: DEFIBROTIDE SODIUM
     Indication: Venoocclusive liver disease
     Dosage: 25 MG/KG (25 MG/KG/24 HOURS)
     Route: 042
     Dates: start: 20220101, end: 20220108
  2. DEFITELIO [Suspect]
     Active Substance: DEFIBROTIDE SODIUM
     Dosage: 25 MG/KG (25 MG/KG/24 HOURS)
     Route: 042
     Dates: start: 20220107, end: 20220108
  3. DEFITELIO [Suspect]
     Active Substance: DEFIBROTIDE SODIUM
     Dosage: 25 MG/KG (25 MG/KG/24 HOURS)
     Route: 042
     Dates: start: 20220126, end: 20220129
  4. THROMBOMODULIN ALFA [Suspect]
     Active Substance: THROMBOMODULIN ALFA
     Indication: Product used for unknown indication
     Dosage: UNKNOWN DOSE AND FREQUENCY
  5. CARBAZOCHROME SODIUM SULFONATE [Concomitant]
     Active Substance: CARBAZOCHROME SODIUM SULFONATE
     Indication: Gastrointestinal haemorrhage
     Dosage: UNK
     Dates: start: 20220107, end: 202201
  6. CARBAZOCHROME SODIUM SULFONATE [Concomitant]
     Active Substance: CARBAZOCHROME SODIUM SULFONATE
     Dosage: UNK
     Dates: start: 20220130
  7. SOLACET D [Concomitant]
     Indication: Hypotension
     Dosage: UNK
     Dates: start: 20220108

REACTIONS (6)
  - Venoocclusive liver disease [Fatal]
  - Gastrointestinal haemorrhage [Recovered/Resolved]
  - Gastrointestinal haemorrhage [Not Recovered/Not Resolved]
  - Hypotension [Recovered/Resolved]
  - Graft versus host disease in gastrointestinal tract [Not Recovered/Not Resolved]
  - Off label use [Unknown]

NARRATIVE: CASE EVENT DATE: 20220101
